FAERS Safety Report 8943519 (Version 2)
Quarter: 2012Q4

REPORT INFORMATION
  Report Type: 
  Country: BR (occurrence: BR)
  Receive Date: 20121203
  Receipt Date: 20121205
  Transmission Date: 20130627
  Serious: Yes (Other)
  Sender: FDA-Public Use
  Company Number: PHHY2012BR108977

PATIENT
  Sex: Male
  Weight: 62 kg

DRUGS (10)
  1. DIOVAN TRIPLE [Suspect]
     Indication: BLOOD PRESSURE
     Dosage: 1 DF, QD, , 160/12, 5/5 mg
  2. ATENOLOL [Suspect]
     Indication: BLOOD PRESSURE
     Dosage: 1 DF, QD
     Route: 048
  3. OMEPRAZOLE [Concomitant]
     Dosage: 20 mg, BID
     Route: 048
  4. DIGOXIN [Concomitant]
     Dosage: 0.26 mg, QD
     Route: 048
  5. CARVEDILOL [Concomitant]
     Dosage: 6.2 mg, QD
     Route: 048
  6. SIMVASTATIN [Concomitant]
     Dosage: 20 mg, QD
     Route: 048
  7. LOVALO [Concomitant]
     Dosage: 2.6 mg, QD
     Route: 048
  8. CITALOPRAM [Concomitant]
     Dosage: 20 mg, QD, In the morning
     Route: 048
  9. MAREVAN [Concomitant]
     Indication: COAGULOPATHY
     Dosage: 5 mg, QD
  10. BROMAZEPAM [Concomitant]
     Indication: SLEEP DISORDER
     Dosage: 3 mg, UNK, At night
     Route: 048

REACTIONS (3)
  - Parkinson^s disease [Not Recovered/Not Resolved]
  - Tremor [Not Recovered/Not Resolved]
  - Blood pressure increased [Recovered/Resolved]
